FAERS Safety Report 6195853-3 (Version None)
Quarter: 2009Q2

REPORT INFORMATION
  Report Type: 
  Country: None (occurrence: None)
  Receive Date: 20090515
  Receipt Date: 20090429
  Transmission Date: 20091009
  Serious: Yes (Hospitalization)
  Sender: FDA-Public Use
  Company Number: 2009PV038116

PATIENT
  Age: 56 Year
  Sex: Female
  Weight: 163.2949 kg

DRUGS (22)
  1. SYMLIN [Suspect]
     Indication: TYPE 2 DIABETES MELLITUS
     Dosage: 60 MCG;TID;SC 120 MCG;BID;SC 60 MCG;BID;SC 45 MCG;BID;SC 30 MCG;BID;SC; 15 MCG;BID;SC
     Route: 058
     Dates: start: 20080301, end: 20080301
  2. SYMLIN [Suspect]
     Indication: TYPE 2 DIABETES MELLITUS
     Dosage: 60 MCG;TID;SC 120 MCG;BID;SC 60 MCG;BID;SC 45 MCG;BID;SC 30 MCG;BID;SC; 15 MCG;BID;SC
     Route: 058
     Dates: start: 20080301, end: 20080301
  3. SYMLIN [Suspect]
     Indication: TYPE 2 DIABETES MELLITUS
     Dosage: 60 MCG;TID;SC 120 MCG;BID;SC 60 MCG;BID;SC 45 MCG;BID;SC 30 MCG;BID;SC; 15 MCG;BID;SC
     Route: 058
     Dates: start: 20080301, end: 20080401
  4. SYMLIN [Suspect]
     Indication: TYPE 2 DIABETES MELLITUS
     Dosage: 60 MCG;TID;SC 120 MCG;BID;SC 60 MCG;BID;SC 45 MCG;BID;SC 30 MCG;BID;SC; 15 MCG;BID;SC
     Route: 058
     Dates: start: 20080401, end: 20080401
  5. SYMLIN [Suspect]
     Indication: TYPE 2 DIABETES MELLITUS
     Dosage: 60 MCG;TID;SC 120 MCG;BID;SC 60 MCG;BID;SC 45 MCG;BID;SC 30 MCG;BID;SC; 15 MCG;BID;SC
     Route: 058
     Dates: start: 20080401
  6. NOVOLOG [Concomitant]
  7. LANTUS [Concomitant]
  8. TEGRETOL [Concomitant]
  9. LASIX [Concomitant]
  10. REGLAN [Concomitant]
  11. NEXIUM [Concomitant]
  12. PHENERGAN [Concomitant]
  13. VYTORIN [Concomitant]
  14. NITROGLYCERIN [Concomitant]
  15. ATENOLOL [Concomitant]
  16. ADALAT [Concomitant]
  17. PLAVIX [Concomitant]
  18. VICODIN [Concomitant]
  19. MUCINEX DM [Concomitant]
  20. FLONASE [Concomitant]
  21. ALBUTEROL [Concomitant]
  22. BYETTA [Concomitant]

REACTIONS (30)
  - ABASIA [None]
  - ANOREXIA [None]
  - ARTHRITIS [None]
  - BLOOD FOLATE DECREASED [None]
  - BLOOD GLUCOSE DECREASED [None]
  - BLOOD GLUCOSE INCREASED [None]
  - CARDIAC FAILURE CONGESTIVE [None]
  - CARDIOVASCULAR DISORDER [None]
  - CEREBROVASCULAR ACCIDENT [None]
  - CHOLECYSTITIS INFECTIVE [None]
  - CONDITION AGGRAVATED [None]
  - DIABETIC NEUROPATHY [None]
  - FALL [None]
  - FIBROMYALGIA [None]
  - GALLBLADDER ENLARGEMENT [None]
  - GASTROOESOPHAGEAL REFLUX DISEASE [None]
  - HEPATIC CIRRHOSIS [None]
  - HEPATITIS CHRONIC ACTIVE [None]
  - HYPOPHAGIA [None]
  - INSOMNIA [None]
  - IRRITABLE BOWEL SYNDROME [None]
  - MUSCLE ATROPHY [None]
  - MUSCLE DISORDER [None]
  - SINUS CONGESTION [None]
  - SINUS DISORDER [None]
  - SINUSITIS [None]
  - TRANSIENT ISCHAEMIC ATTACK [None]
  - VISUAL ACUITY REDUCED [None]
  - VITAMIN B12 DECREASED [None]
  - WEIGHT DECREASED [None]
